FAERS Safety Report 9587675 (Version 1)
Quarter: 2013Q4

REPORT INFORMATION
  Report Type: Spontaneous
  Country: US (occurrence: US)
  Receive Date: 20131003
  Receipt Date: 20131003
  Transmission Date: 20140711
  Serious: No
  Sender: FDA-Public Use
  Company Number: US-PFIZER INC-2013281634

PATIENT
  Age: 68 Year
  Sex: Male

DRUGS (1)
  1. INSPRA [Suspect]
     Indication: HYPERTENSION
     Dosage: 50 MG, 1X/DAY
     Route: 048
     Dates: start: 1993

REACTIONS (2)
  - Arthritis [Unknown]
  - Back pain [Unknown]
